FAERS Safety Report 7388473-6 (Version None)
Quarter: 2011Q2

REPORT INFORMATION
  Report Type: 
  Country: None (occurrence: None)
  Receive Date: 20110401
  Receipt Date: 20110329
  Transmission Date: 20111010
  Serious: Yes (Death, Other)
  Sender: FDA-Public Use
  Company Number: PHFR2011GB02235

PATIENT
  Sex: Male

DRUGS (1)
  1. CLOZARIL [Suspect]
     Indication: SCHIZOPHRENIA
     Dosage: UNK
     Route: 048
     Dates: start: 19960901

REACTIONS (5)
  - MALAISE [None]
  - DIARRHOEA [None]
  - DEATH [None]
  - WEIGHT DECREASED [None]
  - ABDOMINAL STRANGULATED HERNIA [None]
